FAERS Safety Report 7251054-9 (Version None)
Quarter: 2011Q1

REPORT INFORMATION
  Report Type: 
  Country: None (occurrence: None)
  Receive Date: 20110128
  Receipt Date: 20100928
  Transmission Date: 20110831
  Serious: Yes (Other)
  Sender: FDA-Public Use
  Company Number: US-BAYER-201033885NA

PATIENT
  Sex: Female
  Weight: 73.469 kg

DRUGS (10)
  1. YAZ [Suspect]
     Indication: PRODUCT USED FOR UNKNOWN INDICATION
     Route: 048
  2. METHYLPREDNISOLONE ACETATE [Concomitant]
     Dosage: 4 UNK, UNK
     Route: 048
     Dates: start: 20060101
  3. YASMIN [Suspect]
     Dosage: UNK
     Dates: start: 20020301, end: 20070401
  4. OCELLA [Suspect]
     Dosage: UNK
     Dates: start: 20020301, end: 20070401
  5. IBUPROFEN [Concomitant]
     Dosage: 600 MG, PRN
     Dates: start: 20070228
  6. YASMIN [Suspect]
     Indication: CONTRACEPTION
     Dosage: UNK
     Route: 048
     Dates: start: 20000101, end: 20100101
  7. OCELLA [Suspect]
     Indication: CONTRACEPTION
     Dosage: UNK
     Route: 048
     Dates: start: 20000101, end: 20100101
  8. MECLIZINE [Concomitant]
     Dosage: 12.5 UNK, UNK
     Route: 048
     Dates: start: 20060101
  9. WELLBUTRIN [Concomitant]
     Dosage: 150 MG, UNK
     Route: 048
     Dates: start: 20060101
  10. AMBIEN [Concomitant]
     Dosage: 10 UNK, UNK
     Route: 048
     Dates: start: 20060201

REACTIONS (3)
  - CHOLELITHIASIS [None]
  - CHOLECYSTITIS [None]
  - ABDOMINAL PAIN UPPER [None]
